FAERS Safety Report 5151503-6 (Version None)
Quarter: 2006Q4

REPORT INFORMATION
  Report Type: 
  Country: None (occurrence: None)
  Receive Date: 20061115
  Receipt Date: 20061010
  Transmission Date: 20070319
  Serious: Yes (Other)
  Sender: FDA-Public Use
  Company Number: 2006UW19655

PATIENT
  Age: 27077 Day
  Sex: Female
  Weight: 81.6 kg

DRUGS (10)
  1. NEXIUM [Suspect]
     Indication: GASTROOESOPHAGEAL REFLUX DISEASE
     Route: 048
     Dates: start: 20060401
  2. ATENOLOL [Concomitant]
  3. BENAZEPRIL HYDROCHLORIDE [Concomitant]
  4. SYNTHROID [Concomitant]
  5. GLYBISIDE [Concomitant]
  6. NORVASC [Concomitant]
  7. ALLOPURINOL [Concomitant]
  8. HYDROCHLORAZIDE [Concomitant]
  9. METFORMIN [Concomitant]
  10. GENERIC VICODAN [Concomitant]

REACTIONS (4)
  - ABDOMINAL PAIN UPPER [None]
  - CARDIAC STRESS TEST ABNORMAL [None]
  - DYSPEPSIA [None]
  - ERUCTATION [None]
